FAERS Safety Report 8792789 (Version 8)
Quarter: 2014Q1

REPORT INFORMATION
  Report Type: Report from Study
  Country: JP (occurrence: JP)
  Receive Date: 20120918
  Receipt Date: 20140205
  Transmission Date: 20141002
  Serious: Yes (Hospitalization, Other)
  Sender: FDA-Public Use
  Company Number: JP-VERTEX PHARMACEUTICAL INC.-2012-021230

PATIENT
  Age: 61 Year
  Sex: Female

DRUGS (13)
  1. VX-950 (TELAPREVIR) [Suspect]
     Indication: CHRONIC HEPATITIS C
     Dosage: 1500 MG, QD
     Route: 048
     Dates: start: 20120705, end: 20120903
  2. REBETOL [Suspect]
     Indication: CHRONIC HEPATITIS C
     Dosage: 600 MG, QD
     Route: 048
     Dates: start: 20120705, end: 20120724
  3. REBETOL [Suspect]
     Dosage: 400 MG, QD
     Route: 048
     Dates: start: 20120725, end: 20120731
  4. REBETOL [Suspect]
     Dosage: 200 MG, QD
     Route: 048
     Dates: start: 20120801, end: 20120807
  5. REBETOL [Suspect]
     Dosage: 100 MG, QD
     Route: 048
     Dates: start: 20120808, end: 20120903
  6. PEGINTRON [Suspect]
     Indication: CHRONIC HEPATITIS C
     Dosage: 1.5 ?G/KG, QW
     Route: 058
     Dates: start: 20120705, end: 20120829
  7. TSUMURA RIKKUNSHITO EXTRACT GRANULES FOR ETHICAL USE [Suspect]
     Indication: ADVERSE EVENT
     Dosage: 7.5 G, QD
     Route: 048
     Dates: start: 20120706, end: 20120807
  8. ALLEGRA [Suspect]
     Indication: ADVERSE EVENT
     Dosage: 120 MG, QD
     Route: 048
     Dates: start: 20120711, end: 20120905
  9. ZYLORIC [Suspect]
     Indication: ADVERSE EVENT
     Dosage: 200 MG, QD
     Route: 048
     Dates: start: 20120801, end: 20120905
  10. GASMOTIN [Suspect]
     Indication: ADVERSE EVENT
     Dosage: 15 MG, QD
     Route: 048
     Dates: start: 20120808, end: 20120905
  11. COPEGUS [Concomitant]
     Dosage: 600 MG, QD
     Route: 048
     Dates: start: 20121107
  12. PEGASYS [Concomitant]
     Dosage: 180 ?G, UNK
     Route: 058
     Dates: start: 20121107
  13. NAUZELIN (OTHER AGENTS AFFECTING DIGESTIVE ORGANS) [Concomitant]

REACTIONS (3)
  - Renal impairment [Recovered/Resolved]
  - Drug eruption [Recovered/Resolved]
  - Anaemia [Recovered/Resolved]
